FAERS Safety Report 15010982 (Version 1)
Quarter: 2018Q2

REPORT INFORMATION
  Report Type: Spontaneous
  Country: US (occurrence: US)
  Receive Date: 20180614
  Receipt Date: 20180614
  Transmission Date: 20180711
  Serious: No
  Sender: FDA-Public Use
  Company Number: US-IPSEN BIOPHARMACEUTICALS, INC.-2018-05639

PATIENT
  Sex: Female

DRUGS (1)
  1. DYSPORT [Suspect]
     Active Substance: ABOBOTULINUMTOXINA
     Indication: SKIN WRINKLING
     Dosage: LESS THAN FIVE UNITS
     Route: 065
     Dates: start: 20180329, end: 20180329

REACTIONS (2)
  - Injection site pain [Recovered/Resolved]
  - Underdose [Unknown]

NARRATIVE: CASE EVENT DATE: 20180329
